FAERS Safety Report 7555645-7 (Version None)
Quarter: 2011Q2

REPORT INFORMATION
  Report Type: 
  Country: None (occurrence: None)
  Receive Date: 20110617
  Receipt Date: 20080318
  Transmission Date: 20111010
  Serious: Yes (Hospitalization, Other)
  Sender: FDA-Public Use
  Company Number: PHMT2006CA02053

PATIENT
  Sex: Male

DRUGS (10)
  1. CORTEF [Concomitant]
     Dosage: 20 MG, QD
  2. CRESTOR [Concomitant]
     Dosage: 10 G, QHS
  3. METFFORMIN HYDROCHLORIDE [Concomitant]
  4. SYNTHROID [Concomitant]
     Dosage: 0.175 MG, QD
  5. SANDOSTATIN LAR [Suspect]
     Dosage: 40 MG ONCE A MONTH
     Route: 030
     Dates: start: 19970301, end: 20070620
  6. ANDRIOL [Concomitant]
  7. BROMOCRIPTINE MESYLATE [Concomitant]
     Dosage: 2.5 MG, TID
  8. COUMADIN [Concomitant]
  9. APO-AMITRIPTYLINE [Concomitant]
     Dosage: 10 MG, QHS
  10. WARFARIN SODIUM [Concomitant]
     Dosage: 5 MG, QD

REACTIONS (10)
  - PULMONARY EMBOLISM [None]
  - CARPAL TUNNEL SYNDROME [None]
  - HYPOAESTHESIA [None]
  - PALLOR [None]
  - BLOOD DISORDER [None]
  - CHEST PAIN [None]
  - COAGULOPATHY [None]
  - LIMB DISCOMFORT [None]
  - HEART RATE DECREASED [None]
  - CONTUSION [None]
